FAERS Safety Report 9085224 (Version 1)
Quarter: 2013Q1

REPORT INFORMATION
  Report Type: Spontaneous
  Country: US (occurrence: US)
  Receive Date: 20130130
  Receipt Date: 20130130
  Transmission Date: 20140127
  Serious: Yes (Hospitalization)
  Sender: FDA-Public Use
  Company Number: US-BAYER-2013-010776

PATIENT
  Age: 44 Year
  Sex: Female

DRUGS (8)
  1. YASMIN [Suspect]
  2. OCELLA [Suspect]
  3. ALEVE [Concomitant]
  4. IBUPROFEN [Concomitant]
  5. MULTIVITAMIN [Concomitant]
  6. CALCIUM CARBONATE [Concomitant]
  7. MORPHINE [Concomitant]
     Indication: PAIN
  8. VICODIN [Concomitant]
     Indication: PAIN

REACTIONS (1)
  - Deep vein thrombosis [None]
